FAERS Safety Report 19198836 (Version 1)
Quarter: 2021Q2

REPORT INFORMATION
  Report Type: Spontaneous
  Country: US (occurrence: US)
  Receive Date: 20210429
  Receipt Date: 20210429
  Transmission Date: 20210717
  Serious: Yes (Other)
  Sender: FDA-Public Use
  Company Number: US-ASTRAZENECA-2021A364517

PATIENT
  Sex: Male
  Weight: 78.5 kg

DRUGS (2)
  1. QUETIAPINE FUMARATE. [Suspect]
     Active Substance: QUETIAPINE FUMARATE
     Route: 048
     Dates: start: 201511, end: 201805
  2. FIBER SUPPLEMENTS [Concomitant]

REACTIONS (6)
  - Toxicity to various agents [Unknown]
  - Dyschezia [Unknown]
  - Decreased appetite [Unknown]
  - Frustration tolerance decreased [Unknown]
  - Feeling abnormal [Unknown]
  - Body temperature abnormal [Unknown]
